FAERS Safety Report 24153327 (Version 1)
Quarter: 2024Q3

REPORT INFORMATION
  Report Type: Spontaneous
  Country: US (occurrence: None)
  Receive Date: 20240730
  Receipt Date: 20240730
  Transmission Date: 20241017
  Serious: Yes (Other)
  Sender: Public
  Company Number: None

PATIENT
  Age: 72 Year
  Sex: Female

DRUGS (1)
  1. REPATHA [Suspect]
     Active Substance: EVOLOCUMAB

REACTIONS (4)
  - Fall [None]
  - Lower limb fracture [None]
  - Hand fracture [None]
  - Cystitis [None]

NARRATIVE: CASE EVENT DATE: 20240726
